FAERS Safety Report 19449176 (Version 1)
Quarter: 2021Q2

REPORT INFORMATION
  Report Type: Report from Study
  Country: CO (occurrence: CO)
  Receive Date: 20210622
  Receipt Date: 20210622
  Transmission Date: 20210717
  Serious: Yes (Hospitalization)
  Sender: FDA-Public Use
  Company Number: CO-ASTRAZENECA-2021A545662

PATIENT
  Age: 54 Year
  Sex: Female
  Weight: 58 kg

DRUGS (10)
  1. LEVOTHYROXINE SODIUM. [Concomitant]
     Active Substance: LEVOTHYROXINE SODIUM
     Indication: HYPOTHYROIDISM
     Dosage: 75 MICROGRAM, QD
     Route: 048
     Dates: start: 20210306, end: 20210519
  2. ESOMEPRAZOLE. [Concomitant]
     Active Substance: ESOMEPRAZOLE MAGNESIUM
     Indication: DYSPEPSIA
     Dosage: 20 MILLIGRAM, QD
     Route: 048
     Dates: start: 20210512, end: 20210609
  3. PEMBROLIZUMAB. [Suspect]
     Active Substance: PEMBROLIZUMAB
     Indication: TRIPLE NEGATIVE BREAST CANCER
     Dosage: 200 MILLIGRAM, Q3W ? EVERY 21 DAY CYCLE
     Route: 042
     Dates: start: 20210325, end: 20210414
  4. TOZINAMERAN. [Concomitant]
     Active Substance: TOZINAMERAN
     Indication: COVID-19 PROPHYLAXIS
     Dosage: 0.3 MILLILITER, ONCE0.3ML ONCE/SINGLE ADMINISTRATION
     Route: 030
     Dates: start: 20210528, end: 20210528
  5. ONDANSETRON [Concomitant]
     Active Substance: ONDANSETRON
     Indication: NAUSEA
     Dosage: TOTAL DAILY DOSE: 8MG, PRN
     Route: 048
     Dates: start: 20210326, end: 20210606
  6. OLAPARIB. [Suspect]
     Active Substance: OLAPARIB
     Indication: TRIPLE NEGATIVE BREAST CANCER
     Dosage: 300 MILLIGRAM, BID ? DAILY
     Route: 048
     Dates: start: 20210325, end: 20210505
  7. LEVOTHYROXINE SODIUM. [Concomitant]
     Active Substance: LEVOTHYROXINE SODIUM
     Indication: HYPOTHYROIDISM
     Dosage: 100 MILLIGRAM, QD
     Route: 048
     Dates: start: 20210520
  8. OLAPARIB. [Suspect]
     Active Substance: OLAPARIB
     Indication: TRIPLE NEGATIVE BREAST CANCER
     Dosage: 300 MILLIGRAM, BID ? DAILY
     Route: 048
     Dates: start: 20210506, end: 20210506
  9. PEMBROLIZUMAB. [Suspect]
     Active Substance: PEMBROLIZUMAB
     Indication: TRIPLE NEGATIVE BREAST CANCER
     Dosage: 200 MILLIGRAM, Q3W ? EVERY 21 DAY CYCLE
     Route: 042
     Dates: start: 20210505, end: 20210505
  10. ACETAMINOPHEN. [Concomitant]
     Active Substance: ACETAMINOPHEN
     Indication: HEADACHE
     Dosage: TOTAL DAILY DOSE: 1000MG, PRN
     Route: 048
     Dates: start: 20210326, end: 20210531

REACTIONS (1)
  - Autoimmune haemolytic anaemia [Not Recovered/Not Resolved]

NARRATIVE: CASE EVENT DATE: 20210528
